FAERS Safety Report 12333679 (Version 1)
Quarter: 2016Q2

REPORT INFORMATION
  Report Type: Spontaneous
  Country: AE (occurrence: AE)
  Receive Date: 20160504
  Receipt Date: 20160504
  Transmission Date: 20160815
  Serious: Yes (Hospitalization)
  Sender: FDA-Public Use
  Company Number: AE-GLAXOSMITHKLINE-AE2016GSK061750

PATIENT
  Sex: Male

DRUGS (1)
  1. SERETIDE [Suspect]
     Active Substance: FLUTICASONE PROPIONATE\SALMETEROL XINAFOATE
     Indication: ASTHMA
     Dosage: UNK, 20 TIMES
     Route: 055
     Dates: start: 201510

REACTIONS (2)
  - Accidental overdose [Unknown]
  - Drug administration error [Unknown]

NARRATIVE: CASE EVENT DATE: 201510
